FAERS Safety Report 8436568-8 (Version None)
Quarter: 2012Q2

REPORT INFORMATION
  Report Type: 
  Country: None (occurrence: None)
  Receive Date: 20120614
  Receipt Date: 20120606
  Transmission Date: 20120825
  Serious: Yes (Hospitalization)
  Sender: FDA-Public Use
  Company Number: JP-ASTRAZENECA-2012SE38768

PATIENT

DRUGS (1)
  1. MEROPENEM [Suspect]
     Indication: MENINGITIS BACTERIAL
     Route: 042

REACTIONS (1)
  - HEPATIC FUNCTION ABNORMAL [None]
